FAERS Safety Report 13760786 (Version 1)
Quarter: 2017Q3

REPORT INFORMATION
  Report Type: Spontaneous
  Country: IT (occurrence: IT)
  Receive Date: 20170717
  Receipt Date: 20170717
  Transmission Date: 20171127
  Serious: Yes (Other)
  Sender: FDA-Public Use
  Company Number: IT-ELI_LILLY_AND_COMPANY-IT201707000842

PATIENT
  Age: 52 Year
  Sex: Female
  Weight: 50 kg

DRUGS (6)
  1. DELORAZEPAM [Suspect]
     Active Substance: DELORAZEPAM
     Indication: INTENTIONAL SELF-INJURY
     Dosage: 1 MG, SINGLE
     Route: 048
     Dates: start: 20170612, end: 20170612
  2. CYMBALTA [Suspect]
     Active Substance: DULOXETINE HYDROCHLORIDE
     Indication: INTENTIONAL SELF-INJURY
     Dosage: 30 MG, SINGLE
     Route: 048
     Dates: start: 20170612, end: 20170612
  3. PARIET [Suspect]
     Active Substance: RABEPRAZOLE SODIUM
     Indication: INTENTIONAL SELF-INJURY
     Dosage: 20 MG, SINGLE
     Route: 048
     Dates: start: 20170612, end: 20170612
  4. CITALOPRAM [Suspect]
     Active Substance: CITALOPRAM HYDROBROMIDE
     Indication: INTENTIONAL SELF-INJURY
     Dosage: 40 MG/ML, SINGLE
     Route: 048
     Dates: start: 20170612, end: 20170612
  5. DELORAZEPAM [Suspect]
     Active Substance: DELORAZEPAM
     Dosage: 2 MG, SINGLE
     Route: 048
     Dates: start: 20170612, end: 20170612
  6. DELORAZEPAM [Suspect]
     Active Substance: DELORAZEPAM
     Dosage: UNK UNK, SINGLE
     Route: 048
     Dates: start: 20170612, end: 20170612

REACTIONS (3)
  - Drug abuse [Unknown]
  - Bradyphrenia [Unknown]
  - Sopor [Unknown]

NARRATIVE: CASE EVENT DATE: 20170612
